FAERS Safety Report 9094129 (Version 1)
Quarter: 2013Q1

REPORT INFORMATION
  Report Type: Spontaneous
  Country: US (occurrence: None)
  Receive Date: 20130122
  Receipt Date: 20130122
  Transmission Date: 20140127
  Serious: Yes (Hospitalization, Other)
  Sender: FDA-Public Use
  Company Number: 2012-003422

PATIENT
  Age: 59 Year
  Sex: Female

DRUGS (37)
  1. ACTONEL (RISEDRONATE SODIUM) TABLET, 150MG [Suspect]
     Indication: OSTEOPOROSIS
     Dosage: ONCE MONTHLY
     Route: 048
     Dates: start: 20081222, end: 200902
  2. ACTONEL (RISEDRONATE SODIUM) TABLET, 35MG [Suspect]
     Dosage: ONCE WEEKLY
     Route: 048
     Dates: start: 20030117, end: 20050804
  3. ACTONEL [Suspect]
     Dosage: ONCE WEEKLY
     Route: 048
  4. ACTONEL [Suspect]
     Route: 048
     Dates: start: 20011227, end: 200208
  5. BONIVA (IBANDRONATE SODIUM) [Suspect]
     Dosage: 1 MONTH
     Route: 048
     Dates: start: 20091019, end: 201009
  6. FOSAMAX [Suspect]
     Dosage: ALENDRONATE 70 MG
     Route: 048
  7. FOSAMAX (ALENDRONATE SODIUM) [Suspect]
     Dosage: ONCE WEEKLY
     Route: 048
     Dates: start: 20050804, end: 200708
  8. PREDNISONE (PREDNISONE) [Concomitant]
  9. DHEA (PRASTERONE [Concomitant]
  10. LEVOTHYROXINE (LEVOTHYROXINE) [Concomitant]
  11. PROMETHAZINE (PROMETHAZINE) [Concomitant]
  12. PROCHLORPERAZINE (PROCHLORPERAZINE) [Concomitant]
  13. OXYCONTIN (OXYCODONE HYDROCHLORIDE) [Concomitant]
  14. PERCOCET?/00867901/ (OXYCODONE HYDROCHLORIDE, PARACETAMOL) [Concomitant]
  15. FIORICET (BUTALBITAL, CAFFEINE, PARACETAMOL) [Concomitant]
  16. HYDROCODONE W/PARACETAMOL (HYDROCODONE, PARACETAMOL) [Concomitant]
  17. FLEXERIL?/00428402/ (CYCLOBENZAPRINE HYDROCHLORIDE) [Concomitant]
  18. PERIACTIN (CYPROHEPTADINE HYDROCHLORIDE) [Concomitant]
  19. ENTEX?/00922801/ (GUAIFENESIN, PHENYLEPHRINE HYDROCHLORIDE) [Concomitant]
  20. AMI-TEX LA (GUAIFENESIN, PHENYLPROPANOLAMINE HYDROCHLORIDE) [Concomitant]
  21. ALBUTEROL?/00139501/ (SALBUTAMOL) [Concomitant]
  22. VENTOLIN HFA (SALBUTAMOL SULFATE) [Concomitant]
  23. VOLMAX ?/00139501/ (SALBUTAMOL) [Concomitant]
  24. VOSPIRE (SALBUTAMOL SULFATE) [Concomitant]
  25. FLONASE (FLUTICASONE PROPIONATE) [Concomitant]
  26. ADVAIR (FLUTICASONE PROPIONATE, SALMETEROL XINAFOATE) [Concomitant]
  27. LASIX ?/00032601/ (FUROSEMIDE) [Concomitant]
  28. LISINOPRIL (LISINOPRIL) [Concomitant]
  29. ACYCLOVIR? /00587301/ (ACICLOVIR) ) [Concomitant]
  30. VALTREX (VALACICLOVIR HYDROCHLORIDE) [Concomitant]
  31. FAMVIR ?/01226201/ (FAMCICLOVIR) [Concomitant]
  32. LUNESTA (ESZOPICLONE) [Concomitant]
  33. PROZAC (FLUOXETINE HYDROCHLORIDE) [Concomitant]
  34. WELLBUTRIN (BUPROPION HYDROCHLORIDE) ) [Concomitant]
  35. REQUIP (ROPINIROLE HYDROCHLORIDE) [Concomitant]
  36. QUININE SULFATE (QUININE SULFATE) [Concomitant]
  37. ZANTAC (RANITIDINE HYDROCHLORIDE) [Concomitant]

REACTIONS (8)
  - Femur fracture [None]
  - Fracture displacement [None]
  - Pathological fracture [None]
  - Stress fracture [None]
  - Pain in extremity [None]
  - Duodenal ulcer [None]
  - Fibromyalgia [None]
  - Arthritis [None]
